FAERS Safety Report 21635339 (Version 1)
Quarter: 2022Q4

REPORT INFORMATION
  Report Type: Spontaneous
  Country: US (occurrence: US)
  Receive Date: 20221123
  Receipt Date: 20221123
  Transmission Date: 20230113
  Serious: Yes (Hospitalization)
  Sender: FDA-Public Use
  Company Number: US-NOVOPROD-903725

PATIENT
  Age: 72 Year
  Sex: Male

DRUGS (4)
  1. NOVOLOG [Suspect]
     Active Substance: INSULIN ASPART
     Indication: Product used for unknown indication
     Dosage: 6-7 WITH EACH MEAL
     Route: 058
  2. NOVOLOG [Suspect]
     Active Substance: INSULIN ASPART
     Dosage: 34 UNITS
     Route: 058
  3. NOVOLOG [Suspect]
     Active Substance: INSULIN ASPART
     Dosage: 34 UNIYTS
     Route: 058
  4. TOUJEO [Suspect]
     Active Substance: INSULIN GLARGINE
     Indication: Product used for unknown indication
     Dosage: 34 UNITS
     Route: 065
     Dates: end: 20220319

REACTIONS (4)
  - Wrong product administered [Recovered/Resolved]
  - Shock hypoglycaemic [Recovered/Resolved]
  - Hypoglycaemic unconsciousness [Recovered/Resolved]
  - Blood glucose increased [Recovered/Resolved]

NARRATIVE: CASE EVENT DATE: 20210101
